FAERS Safety Report 5447032-2 (Version None)
Quarter: 2007Q3

REPORT INFORMATION
  Report Type: 
  Country: None (occurrence: None)
  Receive Date: 20070808
  Receipt Date: 20070406
  Transmission Date: 20080115
  Serious: Yes (Other)
  Sender: FDA-Public Use
  Company Number: 2007027760

PATIENT
  Age: 65 Year
  Sex: Male
  Weight: 80.2867 kg

DRUGS (4)
  1. FLAGYL [Suspect]
     Indication: HELICOBACTER INFECTION
     Dosage: 1500 MG (500 MG, 3 IN  D); ORAL
     Route: 048
     Dates: start: 20070201, end: 20070201
  2. AMOXICILLIN [Concomitant]
  3. PEPTO-BRISMOL (BISMUTH SUBSALICYLATE) [Concomitant]
  4. PREVACID [Concomitant]

REACTIONS (2)
  - HYPOAESTHESIA [None]
  - NEUROPATHY PERIPHERAL [None]
